FAERS Safety Report 20131163 (Version 1)
Quarter: 2021Q4

REPORT INFORMATION
  Report Type: Spontaneous
  Country: CN (occurrence: CN)
  Receive Date: 20211130
  Receipt Date: 20211130
  Transmission Date: 20220303
  Serious: Yes (Other)
  Sender: FDA-Public Use
  Company Number: CN-BAXTER-2021BAX037457

PATIENT
  Age: 28 Year
  Sex: Female
  Weight: 44 kg

DRUGS (2)
  1. SODIUM CHLORIDE [Suspect]
     Active Substance: SODIUM CHLORIDE
     Indication: Medication dilution
     Route: 041
     Dates: start: 20211107, end: 20211107
  2. CEFATHIAMIDINE [Suspect]
     Active Substance: CEFATHIAMIDINE
     Indication: Upper respiratory tract infection
     Route: 041
     Dates: start: 20211107, end: 20211107

REACTIONS (3)
  - Condition aggravated [Recovered/Resolved]
  - Rhinorrhoea [Recovered/Resolved]
  - Rash maculo-papular [Recovered/Resolved]

NARRATIVE: CASE EVENT DATE: 20211107
